FAERS Safety Report 14120933 (Version 1)
Quarter: 2017Q4

REPORT INFORMATION
  Report Type: Report from Study
  Country: US (occurrence: US)
  Receive Date: 20171024
  Receipt Date: 20171024
  Transmission Date: 20180321
  Serious: Yes (Hospitalization)
  Sender: FDA-Public Use
  Company Number: US-EISAI MEDICAL RESEARCH-EC-2017-031898

PATIENT
  Age: 65 Year
  Sex: Female
  Weight: 51.71 kg

DRUGS (15)
  1. OMEPRAZOLE. [Concomitant]
     Active Substance: OMEPRAZOLE
  2. LACTULOSE. [Concomitant]
     Active Substance: LACTULOSE
  3. TRIFLUOPERAZINE HCL [Concomitant]
  4. MECLIZINE HCL [Concomitant]
     Active Substance: MECLIZINE HYDROCHLORIDE
  5. ENEMA DISPOSABLE [Concomitant]
  6. ONDANSETRON HCL [Concomitant]
     Active Substance: ONDANSETRON HYDROCHLORIDE
  7. HYDROCODONE-ACETAMINOP [Concomitant]
  8. POTASSIUM GLUCONATE [Concomitant]
     Active Substance: POTASSIUM GLUCONATE
  9. LEVOTHYROXINE SODIUM. [Concomitant]
     Active Substance: LEVOTHYROXINE SODIUM
  10. CLINDAMYCIN HCL [Concomitant]
     Active Substance: CLINDAMYCIN HYDROCHLORIDE
  11. CALCIUM 600-VIT D3 [Concomitant]
  12. LENVIMA [Suspect]
     Active Substance: LENVATINIB
     Indication: THYROID CANCER
     Route: 048
     Dates: start: 20170929
  13. OYSTER SHELL CALCIUM-V [Concomitant]
  14. PHENYTOIN SODIUM EXTEN [Concomitant]
  15. FENTANYL. [Concomitant]
     Active Substance: FENTANYL

REACTIONS (2)
  - Pain [Unknown]
  - Feeling hot [Unknown]

NARRATIVE: CASE EVENT DATE: 20171004
